FAERS Safety Report 25177252 (Version 1)
Quarter: 2025Q2

REPORT INFORMATION
  Report Type: Spontaneous
  Country: GB (occurrence: GB)
  Receive Date: 20250409
  Receipt Date: 20250409
  Transmission Date: 20250717
  Serious: Yes (Other)
  Sender: TAKEDA
  Company Number: None

PATIENT
  Sex: Female

DRUGS (1)
  1. VORTIOXETINE [Suspect]
     Active Substance: VORTIOXETINE
     Indication: Depression
     Dates: start: 20250201, end: 20250220

REACTIONS (2)
  - Heavy menstrual bleeding [Recovered/Resolved with Sequelae]
  - Dysmenorrhoea [Recovered/Resolved with Sequelae]

NARRATIVE: CASE EVENT DATE: 20250210
